FAERS Safety Report 9963720 (Version 1)
Quarter: 2014Q1

REPORT INFORMATION
  Report Type: Report from Study
  Country: US (occurrence: US)
  Receive Date: 20140305
  Receipt Date: 20140305
  Transmission Date: 20141002
  Serious: No
  Sender: FDA-Public Use
  Company Number: US-ABBVIE-13P-163-1117406-00

PATIENT
  Age: 75 Year
  Sex: Female
  Weight: 83.54 kg

DRUGS (12)
  1. HUMIRA [Suspect]
     Indication: RHEUMATOID ARTHRITIS
     Route: 058
     Dates: start: 201211, end: 201304
  2. HUMIRA [Suspect]
     Route: 058
     Dates: start: 20130705
  3. LEVOTHYROXINE [Concomitant]
     Indication: PRODUCT USED FOR UNKNOWN INDICATION
  4. MICARDIS [Concomitant]
     Indication: BLOOD PRESSURE
  5. MVI [Concomitant]
     Indication: PRODUCT USED FOR UNKNOWN INDICATION
  6. K [Concomitant]
     Indication: PRODUCT USED FOR UNKNOWN INDICATION
  7. FISH OIL [Concomitant]
     Indication: PRODUCT USED FOR UNKNOWN INDICATION
  8. VIT D [Concomitant]
     Indication: PRODUCT USED FOR UNKNOWN INDICATION
  9. CALCIUM [Concomitant]
     Indication: PRODUCT USED FOR UNKNOWN INDICATION
  10. TRIPLE ABT CREAM [Concomitant]
     Indication: PRODUCT USED FOR UNKNOWN INDICATION
  11. METHOTREXATE [Concomitant]
     Indication: RHEUMATOID ARTHRITIS
  12. FOLIC ACID [Concomitant]
     Indication: PRODUCT USED FOR UNKNOWN INDICATION

REACTIONS (9)
  - Chills [Recovered/Resolved]
  - Influenza like illness [Recovered/Resolved]
  - Asthenia [Recovered/Resolved]
  - Nausea [Recovered/Resolved]
  - Injection site erythema [Unknown]
  - Injection site bruising [Unknown]
  - Injection site mass [Unknown]
  - Rheumatoid arthritis [Unknown]
  - Asthenia [Recovered/Resolved]
